FAERS Safety Report 7355757-7 (Version None)
Quarter: 2011Q1

REPORT INFORMATION
  Report Type: 
  Country: None (occurrence: None)
  Receive Date: 20110316
  Receipt Date: 20110308
  Transmission Date: 20110831
  Serious: Yes (Hospitalization, Other)
  Sender: FDA-Public Use
  Company Number: US-TEVA-270560USA

PATIENT
  Sex: Female

DRUGS (1)
  1. LAMOTRIGINE [Suspect]

REACTIONS (5)
  - PNEUMONIA [None]
  - CONVULSION [None]
  - MYOCARDIAL INFARCTION [None]
  - BLOOD SODIUM DECREASED [None]
  - BLOOD POTASSIUM DECREASED [None]
